FAERS Safety Report 4365346-4 (Version None)
Quarter: 2004Q2

REPORT INFORMATION
  Report Type: 
  Country: None (occurrence: None)
  Receive Date: 20040520
  Receipt Date: 20040507
  Transmission Date: 20050107
  Serious: Yes (Life-Threatening)
  Sender: FDA-Public Use
  Company Number: 04H-163-0260166-00

PATIENT
  Age: 3 Year
  Sex: Female
  Weight: 15 kg

DRUGS (11)
  1. NEOSTIGMINE METHYLSULFATE INJECTION (NEOSTIGMINE) [Suspect]
     Indication: NEUROMUSCULAR BLOCKADE REVERSAL
     Dosage: 0.5 MG, INTRAVENOUS
     Route: 042
  2. HALOTHANE [Suspect]
     Indication: INDUCTION AND MAINTENANCE OF ANAESTHESIA
     Dosage: INHALATION
     Route: 045
  3. SEVOFLURANE [Suspect]
     Indication: INDUCTION AND MAINTENANCE OF ANAESTHESIA
  4. ESMOLOL [Concomitant]
  5. PROPRANOLOL [Concomitant]
  6. PROPOFOL [Concomitant]
  7. FENTANYL [Concomitant]
  8. NITROUS OXIDE [Concomitant]
  9. OXYGEN [Concomitant]
  10. VECURONIUM BROMIDE [Concomitant]
  11. GLYCOPYRRONIUM BROMIDE [Concomitant]

REACTIONS (5)
  - ANAESTHETIC COMPLICATION [None]
  - ARRHYTHMIA SUPRAVENTRICULAR [None]
  - ATRIOVENTRICULAR BLOCK [None]
  - CARDIAC ARREST [None]
  - ELECTROCARDIOGRAM QT PROLONGED [None]
